FAERS Safety Report 7304875-8 (Version None)
Quarter: 2011Q1

REPORT INFORMATION
  Report Type: 
  Country: None (occurrence: None)
  Receive Date: 20110222
  Receipt Date: 20110216
  Transmission Date: 20110831
  Serious: Yes (Hospitalization)
  Sender: FDA-Public Use
  Company Number: BR-US-EMD SERONO, INC.-7042721

PATIENT
  Sex: Female

DRUGS (2)
  1. REBIF [Suspect]
     Indication: RELAPSING-REMITTING MULTIPLE SCLEROSIS
  2. CARBAMAZEPINE [Concomitant]

REACTIONS (5)
  - MUSCULAR WEAKNESS [None]
  - KIDNEY INFECTION [None]
  - URINARY TRACT INFECTION [None]
  - DENTAL OPERATION [None]
  - ASTHENIA [None]
